FAERS Safety Report 5261202-8 (Version None)
Quarter: 2007Q1

REPORT INFORMATION
  Report Type: 
  Country: None (occurrence: None)
  Receive Date: 20070309
  Receipt Date: 20070226
  Transmission Date: 20070707
  Serious: Yes (Other)
  Sender: FDA-Public Use
  Company Number: CL-PFIZER INC-2007015374

PATIENT
  Sex: Male

DRUGS (2)
  1. PREGABALIN [Suspect]
     Indication: POLYNEUROPATHY
     Route: 048
  2. CANDESARTAN [Concomitant]
     Indication: HYPERTENSION
     Route: 048

REACTIONS (3)
  - BACK PAIN [None]
  - HEART RATE DECREASED [None]
  - MYALGIA [None]
